FAERS Safety Report 23192822 (Version 1)
Quarter: 2023Q4

REPORT INFORMATION
  Report Type: Spontaneous
  Country: US (occurrence: US)
  Receive Date: 20231116
  Receipt Date: 20231116
  Transmission Date: 20240110
  Serious: No
  Sender: FDA-Public Use
  Company Number: US-LEX-000052

PATIENT
  Age: 68 Year
  Sex: Male

DRUGS (20)
  1. INPEFA [Suspect]
     Active Substance: SOTAGLIFLOZIN
     Indication: Product used for unknown indication
     Route: 048
     Dates: start: 20230914, end: 20231021
  2. LOW-DOSE ASPIRIN [Concomitant]
     Active Substance: ASPIRIN
  3. ALBUTEROL [Concomitant]
     Active Substance: ALBUTEROL
  4. TRAZODONE [Concomitant]
     Active Substance: TRAZODONE HYDROCHLORIDE
  5. CETIRIZINE [Concomitant]
     Active Substance: CETIRIZINE HYDROCHLORIDE
  6. TRELEGY ELLIPTA [Concomitant]
     Active Substance: FLUTICASONE FUROATE\UMECLIDINIUM BROMIDE\VILANTEROL TRIFENATATE
  7. OXYCODONE [Concomitant]
     Active Substance: OXYCODONE
  8. POTASSIUM [Concomitant]
     Active Substance: POTASSIUM
  9. DALIRESP [Concomitant]
     Active Substance: ROFLUMILAST
  10. METOPROLOL TARTRATE [Concomitant]
     Active Substance: METOPROLOL TARTRATE
  11. ELIQUIS [Concomitant]
     Active Substance: APIXABAN
  12. AZELASTINE [Concomitant]
     Active Substance: AZELASTINE\AZELASTINE HYDROCHLORIDE
  13. FLONASE [Concomitant]
     Active Substance: FLUTICASONE PROPIONATE
  14. ROSUVASTATIN [Concomitant]
     Active Substance: ROSUVASTATIN
  15. SERTRALINE [Concomitant]
     Active Substance: SERTRALINE HYDROCHLORIDE
  16. TAMSULOSIN [Concomitant]
     Active Substance: TAMSULOSIN
  17. FUROSEMIDE [Concomitant]
     Active Substance: FUROSEMIDE
  18. OMEPRAZOLE [Concomitant]
     Active Substance: OMEPRAZOLE
  19. PRAMIPEXOLE [Concomitant]
     Active Substance: PRAMIPEXOLE
  20. PREGABALIN [Concomitant]
     Active Substance: PREGABALIN

REACTIONS (1)
  - Dizziness [Recovering/Resolving]
